FAERS Safety Report 8959514 (Version 2)
Quarter: 2013Q1

REPORT INFORMATION
  Report Type: Report from Study
  Country: US (occurrence: US)
  Receive Date: 20121212
  Receipt Date: 20130215
  Transmission Date: 20140127
  Serious: Yes (Other)
  Sender: FDA-Public Use
  Company Number: US-ELI_LILLY_AND_COMPANY-US201210000217

PATIENT
  Age: 58 Year
  Sex: Female
  Weight: 75.74 kg

DRUGS (40)
  1. OLANZAPINE LONG-ACTING IM [Suspect]
     Dosage: 300 MG, UNK
     Dates: start: 20120117
  2. OLANZAPINE LONG-ACTING IM [Suspect]
     Dosage: 300 MG, UNK
     Dates: start: 20120131
  3. OLANZAPINE LONG-ACTING IM [Suspect]
     Dosage: 300 MG, UNK
     Dates: start: 20120214
  4. OLANZAPINE LONG-ACTING IM [Suspect]
     Dosage: 300 MG, UNK
     Dates: start: 20120228
  5. OLANZAPINE LONG-ACTING IM [Suspect]
     Dosage: 300 MG, UNK
     Dates: start: 20120313
  6. OLANZAPINE LONG-ACTING IM [Suspect]
     Dosage: 300 MG, UNK
     Dates: start: 20120327
  7. OLANZAPINE LONG-ACTING IM [Suspect]
     Dosage: 300 MG, UNK
     Dates: start: 20120410
  8. OLANZAPINE LONG-ACTING IM [Suspect]
     Dosage: 300 MG, UNK
     Dates: start: 20120424
  9. OLANZAPINE LONG-ACTING IM [Suspect]
     Dosage: 300 MG, UNK
     Dates: start: 20120508
  10. OLANZAPINE LONG-ACTING IM [Suspect]
     Dosage: 300 MG, UNK
     Dates: start: 20120522
  11. OLANZAPINE LONG-ACTING IM [Suspect]
     Dosage: 300 MG, UNK
     Dates: start: 20120605
  12. OLANZAPINE LONG-ACTING IM [Suspect]
     Dosage: 300 MG, UNK
     Dates: start: 20120619
  13. OLANZAPINE LONG-ACTING IM [Suspect]
     Dosage: 300 MG, UNK
     Dates: start: 20120703
  14. OLANZAPINE LONG-ACTING IM [Suspect]
     Dosage: 300 MG, UNK
     Dates: start: 20120717
  15. OLANZAPINE LONG-ACTING IM [Suspect]
     Dosage: 300 MG, UNK
     Dates: start: 20120731
  16. OLANZAPINE LONG-ACTING IM [Suspect]
     Dosage: 300 MG, UNK
     Dates: start: 20120814
  17. OLANZAPINE LONG-ACTING IM [Suspect]
     Dosage: 150 MG, UNK
     Dates: start: 20120929
  18. OLANZAPINE LONG-ACTING IM [Suspect]
     Dosage: 150 MG, UNK
     Dates: start: 20120911
  19. OLANZAPINE LONG-ACTING IM [Suspect]
     Dosage: 150 MG, UNK
     Route: 030
     Dates: start: 20120925
  20. OLANZAPINE LONG-ACTING IM [Suspect]
     Dosage: 105 MG, UNK
     Route: 030
     Dates: start: 20121009
  21. ACETAMINOPHEN [Concomitant]
     Indication: PYREXIA
     Dosage: 650 MG, UNK
     Route: 048
     Dates: start: 20111121
  22. MYLANTA ORIGINAL [Concomitant]
     Dosage: 30 ML, PRN
     Dates: start: 20091022
  23. ASPIRIN [Concomitant]
     Dosage: 81 MG, EACH MORNING
     Route: 048
     Dates: start: 20100129
  24. ATORVASTATIN [Concomitant]
     Dosage: 10 MG, EACH EVENING
     Route: 048
     Dates: start: 20120810
  25. CARBAMAZEPINE [Concomitant]
     Dosage: 200 MG, TID
     Route: 048
     Dates: start: 20120606
  26. CLONAZEPAM [Concomitant]
     Dosage: 0.5 MG, TID
     Dates: start: 20120424
  27. CLONIDINE [Concomitant]
     Dosage: 0.1 MG, PRN
     Dates: start: 20120613
  28. COLACE [Concomitant]
     Dosage: 100 MG, BID
     Dates: start: 20110929
  29. FERROUS SULFATE [Concomitant]
     Dosage: 325 MG, BID
     Route: 048
     Dates: start: 20120308
  30. LASIX [Concomitant]
     Dosage: 20 MG, EACH EVENING
     Route: 048
     Dates: start: 20120810
  31. NOVOLOG [Concomitant]
     Dosage: UNK, PRN
     Route: 058
     Dates: start: 20100129
  32. LACTULOSE [Concomitant]
     Dosage: 30 ML, EACH EVENING
     Dates: start: 20120730
  33. LISINOPRIL [Concomitant]
     Dosage: 5 MG, EACH EVENING
     Route: 048
     Dates: start: 20120810
  34. MOM [Concomitant]
     Dosage: 30 ML, PRN
     Dates: start: 20110923
  35. METFORMIN [Concomitant]
     Dosage: 850 MG, BID
     Route: 048
     Dates: start: 20120308
  36. NITROGLYCERINE [Concomitant]
     Dosage: 0.4 MG, PRN
     Route: 060
     Dates: start: 20100129
  37. PROTONIX [Concomitant]
     Dosage: 40 MG, EACH EVENING
     Route: 048
     Dates: start: 20110923
  38. HYPOTEARS [Concomitant]
     Dosage: 1 GTT, PRN
     Route: 047
     Dates: start: 20110908
  39. ANUSOL [Concomitant]
     Dosage: 2 DF, PRN
     Route: 061
     Dates: start: 20100202
  40. CALAN [Concomitant]
     Dosage: 120 MG, EACH EVENING

REACTIONS (4)
  - Sedation [Recovered/Resolved]
  - Confusional state [Recovered/Resolved]
  - Hypotension [Recovered/Resolved]
  - Depressed level of consciousness [Recovered/Resolved]
